FAERS Safety Report 15477822 (Version 1)
Quarter: 2018Q4

REPORT INFORMATION
  Report Type: Spontaneous
  Country: MX (occurrence: MX)
  Receive Date: 20181002
  Receipt Date: 20181002
  Transmission Date: 20190205
  Serious: Yes (Hospitalization)
  Sender: FDA-Public Use
  Company Number: None

PATIENT
  Age: 41 Year
  Sex: Female
  Weight: 68 kg

DRUGS (5)
  1. IRON [Concomitant]
     Active Substance: IRON
  2. ZEDESEN [Concomitant]
  3. LYRICA [Suspect]
     Active Substance: PREGABALIN
     Indication: SCIATICA
     Dosage: ?          QUANTITY:1 CAPSULE(S);?
     Route: 048
  4. DORIXINA [Concomitant]
  5. CEFTRIAXONE. [Concomitant]
     Active Substance: CEFTRIAXONE

REACTIONS (5)
  - Nausea [None]
  - Dizziness [None]
  - Somnolence [None]
  - Asthenia [None]
  - Blepharitis [None]

NARRATIVE: CASE EVENT DATE: 20180902
